FAERS Safety Report 15154940 (Version 1)
Quarter: 2018Q3

REPORT INFORMATION
  Report Type: Spontaneous
  Country: CA (occurrence: CA)
  Receive Date: 20180717
  Receipt Date: 20180717
  Transmission Date: 20181010
  Serious: Yes (Hospitalization)
  Sender: FDA-Public Use
  Company Number: CA-TEVA-2018-CA-926521

PATIENT
  Age: 16 Year
  Sex: Male

DRUGS (11)
  1. PREDNISONE. [Suspect]
     Active Substance: PREDNISONE
     Indication: IMMUNOSUPPRESSANT DRUG THERAPY
     Route: 048
  2. POSACONAZOLE [Concomitant]
     Active Substance: POSACONAZOLE
     Indication: FUNGAL INFECTION
     Route: 065
  3. METHYLPREDNISOLONE. [Suspect]
     Active Substance: METHYLPREDNISOLONE
     Indication: IMMUNOSUPPRESSANT DRUG THERAPY
     Route: 065
  4. MYCOPHENOLATE MOFETIL. [Suspect]
     Active Substance: MYCOPHENOLATE MOFETIL
     Indication: IMMUNOSUPPRESSANT DRUG THERAPY
     Route: 065
  5. CEPHALEXIN. [Concomitant]
     Active Substance: CEPHALEXIN
     Indication: CELLULITIS
     Route: 065
  6. ACETAMINOPHEN. [Concomitant]
     Active Substance: ACETAMINOPHEN
     Indication: PREMEDICATION
     Route: 065
  7. TACROLIMUS. [Suspect]
     Active Substance: TACROLIMUS
     Indication: IMMUNOSUPPRESSANT DRUG THERAPY
     Dosage: MAINTAINED AT DRUG LEVEL OF 10?12 MICROG/L
     Route: 065
  8. AMPHOTERICIN B LIPOSOMAL [Concomitant]
     Active Substance: AMPHOTERICIN B
     Indication: FUNGAL INFECTION
     Dosage: 100 MICROG/ML DILUTED IN STERILE WATER
     Route: 061
  9. DIPHENHYDRAMINE. [Concomitant]
     Active Substance: DIPHENHYDRAMINE
     Indication: PREMEDICATION
     Route: 065
  10. BASILIXIMAB [Suspect]
     Active Substance: BASILIXIMAB
     Indication: IMMUNOSUPPRESSANT DRUG THERAPY
     Dosage: TWO DOSES
     Route: 065
  11. AMPHOTERICIN B LIPOSOMAL (LAMB) [Suspect]
     Active Substance: AMPHOTERICIN B
     Indication: FUNGAL INFECTION
     Route: 041

REACTIONS (18)
  - Flushing [Recovered/Resolved]
  - Catheter site necrosis [None]
  - Polyomavirus-associated nephropathy [Unknown]
  - Catheter site papule [None]
  - Nephropathy toxic [None]
  - Graft complication [Unknown]
  - Hypotension [Recovered/Resolved]
  - Renal tubular necrosis [Unknown]
  - Renal injury [Unknown]
  - Renal transplant [None]
  - Device dislocation [None]
  - Skin infection [Recovered/Resolved]
  - Tachycardia [Recovered/Resolved]
  - Catheter site pain [None]
  - Chest discomfort [Recovered/Resolved]
  - Mucormycosis [Recovered/Resolved]
  - Hyperglycaemia [Recovering/Resolving]
  - Skin graft [None]
